FAERS Safety Report 25372326 (Version 2)
Quarter: 2025Q3

REPORT INFORMATION
  Report Type: Report from Study
  Country: KR (occurrence: KR)
  Receive Date: 20250529
  Receipt Date: 20250912
  Transmission Date: 20251020
  Serious: Yes (Other)
  Sender: TAKEDA
  Company Number: KR-TAKEDA-2025TUS049374

PATIENT
  Age: 78 Year
  Sex: Male
  Weight: 75 kg

DRUGS (15)
  1. VEDOLIZUMAB [Suspect]
     Active Substance: VEDOLIZUMAB
     Indication: Colitis ulcerative
  2. COLAZAL [Concomitant]
     Active Substance: BALSALAZIDE DISODIUM
     Dosage: 2250 MILLIGRAM, BID
     Dates: start: 20180614
  3. AZATHIOPRINE [Concomitant]
     Active Substance: AZATHIOPRINE
     Dosage: 50 MILLIGRAM, BID
     Dates: start: 20180614, end: 20200415
  4. AZATHIOPRINE [Concomitant]
     Active Substance: AZATHIOPRINE
     Dosage: 50 MILLIGRAM, QD
     Dates: start: 20200416
  5. Solondo [Concomitant]
     Dosage: 40 MILLIGRAM, QD
     Dates: start: 20230906, end: 20230919
  6. Solondo [Concomitant]
     Dosage: 35 MILLIGRAM, QD
     Dates: start: 20230920, end: 20231003
  7. Solondo [Concomitant]
     Dosage: 30 MILLIGRAM, QD
     Dates: start: 20231004, end: 20231017
  8. Solondo [Concomitant]
     Dosage: 25 MILLIGRAM, QD
     Dates: start: 20231018, end: 20231030
  9. Solondo [Concomitant]
     Dosage: 30 MILLIGRAM, QD
     Dates: start: 20231101, end: 20231107
  10. Solondo [Concomitant]
     Dosage: 25 MILLIGRAM, QD
     Dates: start: 20231108, end: 20231114
  11. Solondo [Concomitant]
     Dosage: 10 MILLIGRAM, QD
     Dates: start: 20231115, end: 20231121
  12. Solondo [Concomitant]
     Dosage: 5 MILLIGRAM, QD
     Dates: start: 20231122, end: 20231128
  13. Feroba you sr [Concomitant]
     Indication: Anaemia prophylaxis
     Dosage: UNK UNK, BID
     Dates: start: 20220901, end: 20230716
  14. NITROFURANTOIN [Concomitant]
     Active Substance: NITROFURANTOIN
     Indication: Prophylaxis against gastrointestinal ulcer
     Dosage: UNK UNK, BID
     Dates: start: 20230518
  15. Escorten [Concomitant]
     Indication: Prophylaxis against gastrointestinal ulcer
     Dosage: UNK UNK, BID
     Dates: start: 20230518

REACTIONS (1)
  - Colitis ulcerative [Recovered/Resolved]

NARRATIVE: CASE EVENT DATE: 20230906
